FAERS Safety Report 7443225-3 (Version None)
Quarter: 2011Q2

REPORT INFORMATION
  Report Type: 
  Country: None (occurrence: None)
  Receive Date: 20110428
  Receipt Date: 20110421
  Transmission Date: 20111010
  Serious: Yes (Life-Threatening)
  Sender: FDA-Public Use
  Company Number: B0714552A

PATIENT
  Age: 43 Year
  Sex: Male

DRUGS (5)
  1. MODOPAR [Concomitant]
     Route: 065
  2. REQUIP [Suspect]
     Indication: PARKINSON'S DISEASE
     Route: 065
     Dates: start: 20020106
  3. AZILECT [Concomitant]
     Route: 065
  4. STALEVO 100 [Concomitant]
     Route: 065
  5. REQUIP [Suspect]
     Indication: PARKINSON'S DISEASE
     Route: 065
     Dates: start: 20080811, end: 20110206

REACTIONS (2)
  - SUICIDE ATTEMPT [None]
  - PATHOLOGICAL GAMBLING [None]
